FAERS Safety Report 8220937-5 (Version None)
Quarter: 2012Q1

REPORT INFORMATION
  Report Type: 
  Country: None (occurrence: None)
  Receive Date: 20120320
  Receipt Date: 20120313
  Transmission Date: 20120608
  Serious: Yes (Other)
  Sender: FDA-Public Use
  Company Number: GB-BRISTOL-MYERS SQUIBB COMPANY-16450785

PATIENT
  Age: 90 Year
  Sex: Female
  Weight: 82 kg

DRUGS (1)
  1. ONGLYZA [Suspect]
     Indication: DIABETES MELLITUS
     Route: 048
     Dates: start: 20111024, end: 20120302

REACTIONS (1)
  - RENAL IMPAIRMENT [None]
